FAERS Safety Report 8591342-7 (Version None)
Quarter: 2012Q3

REPORT INFORMATION
  Report Type: 
  Country: None (occurrence: None)
  Receive Date: 20120724
  Receipt Date: 20120711
  Transmission Date: 20120928
  Serious: Yes (Hospitalization)
  Sender: FDA-Public Use
  Company Number: 2012PROUSA01607

PATIENT
  Age: 72 Year
  Sex: Male
  Weight: 88.9 kg

DRUGS (16)
  1. PROVENGE [Suspect]
     Indication: PROSTATE CANCER METASTATIC
     Dosage: 250 ML, SINGLE, INTRAVENOUS
     Route: 042
     Dates: start: 20120615, end: 20120615
  2. AZOPT [Concomitant]
  3. SIMETHICONE (SIMETICONE) [Concomitant]
  4. SIMVASTATIN [Concomitant]
  5. POTASSIUM CHLORIDE [Concomitant]
  6. OXYCONTIN [Concomitant]
  7. STRATTERA [Concomitant]
  8. AMBIEN [Concomitant]
  9. CIPRO (CIPROFLOXACIN LACTATE) [Concomitant]
  10. GLIPIZIDE [Concomitant]
  11. LASIX [Concomitant]
  12. MAGNESIUM (MAGNESIUM) [Concomitant]
  13. OMEPRAZOLE [Concomitant]
  14. VICODIN [Concomitant]
  15. LOVENOX [Concomitant]
  16. XALATAN [Concomitant]

REACTIONS (1)
  - RENAL FAILURE ACUTE [None]
